FAERS Safety Report 8490517-5 (Version None)
Quarter: 2012Q3

REPORT INFORMATION
  Report Type: 
  Country: None (occurrence: None)
  Receive Date: 20120705
  Receipt Date: 20120621
  Transmission Date: 20120928
  Serious: Yes (Life-Threatening)
  Sender: FDA-Public Use
  Company Number: JP-GILEAD-2012-0054993

PATIENT
  Age: 60 Year
  Sex: Female

DRUGS (51)
  1. WARFARIN SODIUM [Concomitant]
     Indication: PULMONARY ARTERIAL HYPERTENSION
     Route: 048
  2. MUCOSTA [Concomitant]
     Route: 048
  3. PAXIL [Concomitant]
     Route: 048
  4. SULFAMETHOXAZOLE AND TRIMETHOPRIM [Concomitant]
     Indication: PROPHYLAXIS
     Route: 048
  5. MUCOSTA [Concomitant]
     Route: 048
  6. FUNGIZONE [Concomitant]
     Route: 048
  7. ZOLPIDEM [Concomitant]
     Route: 048
  8. ZOLPIDEM [Concomitant]
     Route: 048
  9. FUROSEMIDE [Concomitant]
     Route: 048
  10. ASPARA K [Concomitant]
     Indication: PROPHYLAXIS
     Route: 048
  11. WARFARIN SODIUM [Concomitant]
     Route: 048
  12. CALCIUM CARBONATE [Concomitant]
     Route: 048
  13. SULFAMETHOXAZOLE AND TRIMETHOPRIM [Concomitant]
     Route: 048
  14. ZOLPIDEM [Concomitant]
     Indication: INSOMNIA
     Route: 048
  15. ALDACTONE [Concomitant]
     Route: 048
  16. MAGLAX [Concomitant]
     Indication: PROPHYLAXIS
     Route: 048
  17. MAGLAX [Concomitant]
     Route: 048
  18. NEORAL [Concomitant]
     Route: 048
  19. POTASSIUM MAGNESIUM ASPARTATE [Concomitant]
     Indication: PROPHYLAXIS
     Route: 048
  20. AMOBAN [Concomitant]
     Route: 048
  21. ALFAROL [Concomitant]
     Indication: PROPHYLAXIS
     Route: 048
  22. ALFAROL [Concomitant]
     Route: 048
  23. GASMOTIN [Concomitant]
     Indication: GASTROINTESTINAL TRACT IRRITATION
     Route: 048
  24. MUCOSTA [Concomitant]
     Indication: PROPHYLAXIS
     Route: 048
  25. CALCIUM CARBONATE [Concomitant]
     Indication: PROPHYLAXIS
     Route: 048
  26. PAXIL [Concomitant]
     Indication: DEPRESSION
     Route: 048
  27. SULFAMETHOXAZOLE AND TRIMETHOPRIM [Concomitant]
     Route: 048
  28. NEORAL [Concomitant]
     Route: 048
  29. GASMOTIN [Concomitant]
     Route: 048
  30. CALCIUM CARBONATE [Concomitant]
     Route: 048
  31. AMOBAN [Concomitant]
     Route: 048
  32. RABEPRAZOLE SODIUM [Concomitant]
     Indication: PROPHYLAXIS
     Route: 048
  33. RABEPRAZOLE SODIUM [Concomitant]
     Route: 048
  34. RABEPRAZOLE SODIUM [Concomitant]
     Route: 048
  35. ALDACTONE [Concomitant]
     Route: 048
  36. ALDACTONE [Concomitant]
     Route: 048
  37. FUROSEMIDE [Concomitant]
     Route: 048
  38. FUROSEMIDE [Concomitant]
     Route: 048
  39. AMBRISENTAN [Suspect]
     Indication: PULMONARY ARTERIAL HYPERTENSION
     Dosage: 2.5 MG, QD
     Route: 048
     Dates: start: 20110517, end: 20110523
  40. NEORAL [Concomitant]
     Route: 048
  41. AMOBAN [Concomitant]
     Route: 048
  42. PAXIL [Concomitant]
     Route: 048
  43. FUNGIZONE [Concomitant]
     Route: 048
  44. ALFAROL [Concomitant]
     Route: 048
  45. MAGLAX [Concomitant]
     Route: 048
  46. WARFARIN SODIUM [Concomitant]
     Route: 048
  47. GASMOTIN [Concomitant]
     Indication: GASTROOESOPHAGEAL REFLUX DISEASE
     Route: 048
  48. FUNGIZONE [Concomitant]
     Indication: INFECTION PROPHYLAXIS
     Route: 048
  49. ASPARTIC ACID [Concomitant]
     Indication: PROPHYLAXIS
     Route: 048
  50. VOLIBRIS [Suspect]
     Indication: PULMONARY ARTERIAL HYPERTENSION
     Dosage: 2.5MG PER DAY
     Route: 048
     Dates: start: 20110517, end: 20110523
  51. CICLOSPORIN [Concomitant]
     Indication: INTERSTITIAL LUNG DISEASE
     Dosage: 100MG PER DAY
     Route: 065

REACTIONS (1)
  - INTERSTITIAL LUNG DISEASE [None]
